FAERS Safety Report 8063063-0 (Version None)
Quarter: 2012Q1

REPORT INFORMATION
  Report Type: 
  Country: None (occurrence: None)
  Receive Date: 20120123
  Receipt Date: 20120113
  Transmission Date: 20120608
  Serious: Yes (Other)
  Sender: FDA-Public Use
  Company Number: US-BAYER-2011-124608

PATIENT
  Age: 34 Year
  Sex: Female
  Weight: 74.376 kg

DRUGS (3)
  1. SINGULAIR [Concomitant]
  2. YASMIN [Suspect]
     Indication: PREMENSTRUAL SYNDROME
     Dosage: UNK
     Dates: start: 20030101, end: 20090101
  3. YAZ [Suspect]
     Indication: PREMENSTRUAL SYNDROME
     Dosage: UNK
     Dates: start: 20030101, end: 20090101

REACTIONS (3)
  - CHOLELITHIASIS [None]
  - PAIN [None]
  - EMOTIONAL DISTRESS [None]
